FAERS Safety Report 26111841 (Version 2)
Quarter: 2025Q4

REPORT INFORMATION
  Report Type: Spontaneous
  Country: GB (occurrence: GB)
  Receive Date: 20251202
  Receipt Date: 20251205
  Transmission Date: 20260118
  Serious: Yes (Other)
  Sender: TEVA
  Company Number: GB-002147023-NVSC2025GB179479

PATIENT
  Sex: Female

DRUGS (4)
  1. PREDNISOLONE [Suspect]
     Active Substance: PREDNISOLONE
     Indication: Chronic spontaneous urticaria
     Route: 065
     Dates: start: 20251027, end: 20251114
  2. XOLAIR [Suspect]
     Active Substance: OMALIZUMAB
     Indication: Chronic spontaneous urticaria
     Route: 058
     Dates: start: 20250120, end: 20251117
  3. XOLAIR [Suspect]
     Active Substance: OMALIZUMAB
     Indication: Chronic spontaneous urticaria
     Route: 058
  4. FEXOFENADINE [Suspect]
     Active Substance: FEXOFENADINE HYDROCHLORIDE
     Indication: Chronic spontaneous urticaria
     Route: 065
     Dates: start: 20250120

REACTIONS (6)
  - Angioedema [Unknown]
  - Urticaria [Unknown]
  - Disease recurrence [Unknown]
  - Pruritus [Unknown]
  - Quality of life decreased [Unknown]
  - Insomnia [Unknown]
